FAERS Safety Report 6163565-8 (Version None)
Quarter: 2009Q2

REPORT INFORMATION
  Report Type: 
  Country: None (occurrence: None)
  Receive Date: 20090420
  Receipt Date: 20090420
  Transmission Date: 20091009
  Serious: Yes (Life-Threatening, Other)
  Sender: FDA-Public Use
  Company Number: None

PATIENT
  Age: 28 Year
  Sex: Male
  Weight: 111.1313 kg

DRUGS (1)
  1. PROAIR HFA [Suspect]
     Indication: ASTHMA
     Dosage: 2-3 INHALATIONS 4 TIMES A DAY PO
     Route: 048
     Dates: start: 20081208, end: 20090418

REACTIONS (6)
  - DECREASED ACTIVITY [None]
  - DEVICE MALFUNCTION [None]
  - DRUG INEFFECTIVE [None]
  - FEAR [None]
  - PRODUCT SUBSTITUTION ISSUE [None]
  - WEIGHT INCREASED [None]
